FAERS Safety Report 17195623 (Version 1)
Quarter: 2020Q1

REPORT INFORMATION
  Report Type: Spontaneous
  Country: US (occurrence: US)
  Receive Date: 20191223
  Receipt Date: 20191223
  Transmission Date: 20200409
  Serious: Yes (Life-Threatening, Hospitalization)
  Sender: FDA-Public Use
  Company Number: None

PATIENT
  Age: 42 Year
  Sex: Male
  Weight: 112 kg

DRUGS (1)
  1. APIXABAN [Suspect]
     Active Substance: APIXABAN
     Route: 048

REACTIONS (3)
  - Craniocerebral injury [None]
  - Cerebral haemorrhage [None]
  - Brain midline shift [None]

NARRATIVE: CASE EVENT DATE: 20191223
